FAERS Safety Report 14288071 (Version 1)
Quarter: 2017Q4

REPORT INFORMATION
  Report Type: Report from Study
  Country: DE (occurrence: DE)
  Receive Date: 20171215
  Receipt Date: 20171215
  Transmission Date: 20180321
  Serious: Yes (Death, Life-Threatening, Other)
  Sender: FDA-Public Use
  Company Number: DE-CIPLA LTD.-2017DE22955

PATIENT

DRUGS (4)
  1. CYCLOPHOSPHAMIDE. [Suspect]
     Active Substance: CYCLOPHOSPHAMIDE
     Indication: NEUROBLASTOMA RECURRENT
     Dosage: 25 MG/M2, DAILY
     Route: 048
  2. VINBLASTINE [Suspect]
     Active Substance: VINBLASTINE
     Indication: NEUROBLASTOMA RECURRENT
     Dosage: 3 MG/M2, UNK
     Route: 042
  3. CELECOXIB. [Suspect]
     Active Substance: CELECOXIB
     Indication: NEUROBLASTOMA RECURRENT
     Dosage: 200 MG/M2, BID
     Route: 048
  4. ETOPOSIDE. [Suspect]
     Active Substance: ETOPOSIDE
     Indication: NEUROBLASTOMA RECURRENT
     Dosage: 25 MG/M2,UNKON DAYS 1-21 EVERY SECOND MONTH (4 CYCLES ONLY),
     Route: 048

REACTIONS (3)
  - Thrombocytopenia [Unknown]
  - Anaemia [Unknown]
  - Death [Fatal]
